FAERS Safety Report 11904362 (Version 1)
Quarter: 2016Q1

REPORT INFORMATION
  Report Type: Spontaneous
  Country: US (occurrence: US)
  Receive Date: 20160108
  Receipt Date: 20160108
  Transmission Date: 20160526
  Serious: Yes (Death, Other)
  Sender: FDA-Public Use
  Company Number: US-BRISTOL-MYERS SQUIBB COMPANY-BMS-2016-000111

PATIENT
  Sex: Male

DRUGS (2)
  1. STIVARGA [Concomitant]
     Active Substance: REGORAFENIB
     Indication: HEPATIC CANCER
     Route: 065
  2. BARACLUDE [Suspect]
     Active Substance: ENTECAVIR
     Indication: HEPATIC CANCER
     Route: 065

REACTIONS (1)
  - Death [Fatal]
